FAERS Safety Report 9921130 (Version 1)
Quarter: 2013Q4

REPORT INFORMATION
  Report Type: Spontaneous
  Country: DE (occurrence: None)
  Receive Date: 20131230
  Receipt Date: 20131230
  Transmission Date: 20140711
  Serious: Yes (Hospitalization)
  Sender: FDA-Public Use
  Company Number: E2B_00001490

PATIENT
  Age: 68 Year
  Sex: Male

DRUGS (6)
  1. TRAMADOL (UNKNOWN) (TRAMADOL) [Suspect]
     Indication: PRODUCT USED FOR UNKNOWN INDICATION
     Dosage: UNKNOWN (200 MG, UNKNOWN), ORAL
     Route: 048
     Dates: end: 20130625
  2. PAROXETINE (PAROXETIN) (UNKNOWN) (PAROXETINE) [Suspect]
     Indication: PRODUCT USED FOR UNKNOWN INDICATION
     Dosage: UNKNOWN (20 MG, UNKNOWN), ORAL
     Route: 048
     Dates: end: 20130610
  3. PROMETHAZINE (PROMETHAZIN) (UNKNOWN) [Suspect]
     Indication: PRODUCT USED FOR UNKNOWN INDICATION
     Dosage: UNKNOWN (100 MG, UNKNOWN), ORAL
     Route: 048
     Dates: end: 20130603
  4. ACETYLSALICYLIC ACID (ASS) (UNKNOWN) [Concomitant]
  5. INDOMETACIN (UNKNOWN) [Concomitant]
  6. GABAPENTIN (UNKNOWN) [Concomitant]

REACTIONS (6)
  - Disorientation [None]
  - Drug interaction [None]
  - Tachycardia [None]
  - Hyperhidrosis [None]
  - Restlessness [None]
  - Tremor [None]
